FAERS Safety Report 25941054 (Version 1)
Quarter: 2025Q4

REPORT INFORMATION
  Report Type: Spontaneous
  Country: KR (occurrence: KR)
  Receive Date: 20251020
  Receipt Date: 20251020
  Transmission Date: 20260117
  Serious: Yes (Death, Other)
  Sender: MALLINCKRODT
  Company Number: KR-MALLINCKRODT-MNK202506403

PATIENT
  Age: 1 Day
  Weight: 2 kg

DRUGS (2)
  1. NITRIC OXIDE [Suspect]
     Active Substance: NITRIC OXIDE
     Indication: Newborn persistent pulmonary hypertension
     Dosage: 20 PPM
     Route: 055
     Dates: start: 20251005, end: 20251005
  2. SURFACTANTS [Concomitant]
     Active Substance: SURFACTANTS
     Dates: start: 20251004, end: 20251005

REACTIONS (3)
  - Cardiac arrest [Fatal]
  - Newborn persistent pulmonary hypertension [Fatal]
  - Respiratory failure [Unknown]

NARRATIVE: CASE EVENT DATE: 20251005
